FAERS Safety Report 10268478 (Version 1)
Quarter: 2014Q2

REPORT INFORMATION
  Report Type: Spontaneous
  Country: US (occurrence: None)
  Receive Date: 20140626
  Receipt Date: 20140626
  Transmission Date: 20141212
  Serious: No
  Sender: FDA-Public Use
  Company Number: None

PATIENT
  Age: 70 Year
  Sex: Male
  Weight: 113.7 kg

DRUGS (1)
  1. CETUXIMAB (ERBITUX) (714692) [Suspect]

REACTIONS (5)
  - Rash [None]
  - Dermatitis [None]
  - Skin haemorrhage [None]
  - Rash pustular [None]
  - Bacterial infection [None]
